FAERS Safety Report 4435356-7 (Version None)
Quarter: 2004Q3

REPORT INFORMATION
  Report Type: 
  Country: None (occurrence: None)
  Receive Date: 20040827
  Receipt Date: 20040827
  Transmission Date: 20050211
  Serious: Yes (Other)
  Sender: FDA-Public Use
  Company Number: None

PATIENT
  Sex: Male
  Weight: 131.5885 kg

DRUGS (12)
  1. HYDROCHLOROTHIAZIDE [Suspect]
     Indication: HYPERTENSION
     Dosage: 25 MG ONCE DAILY ORAL
     Route: 048
     Dates: start: 20040420, end: 20040506
  2. POTASSIUM CHLORIDE [Concomitant]
  3. WARFARIN [Concomitant]
  4. ASPIRIN [Concomitant]
  5. GLIPIZIDE [Concomitant]
  6. LISINOPRIL [Concomitant]
  7. DILTIAZEM [Concomitant]
  8. METFORMIN HCL [Concomitant]
  9. MULTI-VITAMIN [Concomitant]
  10. SIMVASTATIN [Concomitant]
  11. TAMSULOSIN [Concomitant]
  12. SILDENAFIL [Concomitant]

REACTIONS (1)
  - MUSCLE CRAMP [None]
